FAERS Safety Report 15403348 (Version 1)
Quarter: 2018Q3

REPORT INFORMATION
  Report Type: Spontaneous
  Country: ES (occurrence: ES)
  Receive Date: 20180919
  Receipt Date: 20180919
  Transmission Date: 20181010
  Serious: Yes (Death, Other)
  Sender: FDA-Public Use
  Company Number: ES-SANIK-2018SA149819AA

PATIENT
  Age: 77 Year
  Sex: Male

DRUGS (4)
  1. CLOPIDOGREL BISULFATE. [Suspect]
     Active Substance: CLOPIDOGREL BISULFATE
     Dosage: UNKNOWN DOSE
     Route: 065
     Dates: start: 2015
  2. VALSARTAN. [Suspect]
     Active Substance: VALSARTAN
     Dosage: UNKNWON DOSE
     Route: 065
     Dates: start: 2015
  3. ATORVASTATIN [Suspect]
     Active Substance: ATORVASTATIN
     Dosage: UNNOWN DOSE
     Route: 065
     Dates: start: 2015
  4. HYDROCHLOROTHIAZIDE. [Suspect]
     Active Substance: HYDROCHLOROTHIAZIDE
     Dosage: UNKNOWN DOSE
     Route: 065
     Dates: start: 2015

REACTIONS (6)
  - Osteitis deformans [Fatal]
  - Swelling face [Fatal]
  - Metastases to bone [Fatal]
  - Bone disorder [Fatal]
  - Lymphadenopathy [Fatal]
  - Prostate cancer [Fatal]

NARRATIVE: CASE EVENT DATE: 2015
